FAERS Safety Report 9580498 (Version 1)
Quarter: 2013Q3

REPORT INFORMATION
  Report Type: Spontaneous
  Country: US (occurrence: None)
  Receive Date: 20130916
  Receipt Date: 20130916
  Transmission Date: 20140515
  Serious: Yes (Other)
  Sender: FDA-Public Use
  Company Number: JPI-P-030499

PATIENT
  Age: 14 Year
  Sex: Male
  Weight: 119.3 kg

DRUGS (2)
  1. XYREM [Suspect]
     Indication: SLEEP DISORDER
     Route: 048
     Dates: start: 201101
  2. METHLPHENIDATE [Concomitant]

REACTIONS (6)
  - Suicidal ideation [None]
  - Condition aggravated [None]
  - Depression [None]
  - Hallucination, auditory [None]
  - Vomiting [None]
  - Nausea [None]
